FAERS Safety Report 8502200-8 (Version None)
Quarter: 2012Q2

REPORT INFORMATION
  Report Type: 
  Country: None (occurrence: None)
  Receive Date: 20120405
  Receipt Date: 20100723
  Transmission Date: 20120825
  Serious: Yes (Other)
  Sender: FDA-Public Use
  Company Number: PHHY2010US47448

PATIENT
  Sex: Female

DRUGS (3)
  1. RECLAST [Suspect]
     Dosage: INFUSION
     Dates: start: 20100629
  2. FOSAMAX [Suspect]
  3. ACTONEL [Suspect]

REACTIONS (6)
  - MALAISE [None]
  - DEPRESSION [None]
  - FEELING ABNORMAL [None]
  - FREQUENT BOWEL MOVEMENTS [None]
  - VOMITING [None]
  - HYPERTENSION [None]
